FAERS Safety Report 16555902 (Version 1)
Quarter: 2019Q3

REPORT INFORMATION
  Report Type: Spontaneous
  Country: GB (occurrence: GB)
  Receive Date: 20190710
  Receipt Date: 20190710
  Transmission Date: 20191004
  Serious: Yes (Hospitalization)
  Sender: FDA-Public Use
  Company Number: GB-MYLANLABS-2019M1063570

PATIENT
  Age: 78 Year
  Sex: Male

DRUGS (10)
  1. MEMANTINE. [Suspect]
     Active Substance: MEMANTINE
     Indication: DEMENTIA ALZHEIMER^S TYPE
     Dosage: 10 MILLIGRAM, (TITRATING DOSE)
     Route: 048
  2. MEMANTINE. [Suspect]
     Active Substance: MEMANTINE
     Dosage: 5 MILLIGRAM (TITRATING DOSE)
     Route: 048
     Dates: start: 20181220
  3. MEMANTINE. [Suspect]
     Active Substance: MEMANTINE
     Dosage: 15 MILLIGRAM (TITRATING DOSE)
     Route: 048
  4. SERETIDE [Concomitant]
     Active Substance: FLUTICASONE PROPIONATE\SALMETEROL XINAFOATE
     Dosage: UNK
  5. ATORVASTATIN [Concomitant]
     Active Substance: ATORVASTATIN
     Dosage: UNK
  6. MEMANTINE. [Suspect]
     Active Substance: MEMANTINE
     Dosage: 20 MILLIGRAM (TITRATING DOSE)
     Route: 048
     Dates: start: 20190116
  7. AMLODIPINE [Concomitant]
     Active Substance: AMLODIPINE BESYLATE
     Dosage: UNK
  8. SALBUTAMOL [Concomitant]
     Active Substance: ALBUTEROL
     Dosage: UNK
  9. FUROSEMIDE. [Concomitant]
     Active Substance: FUROSEMIDE
     Dosage: UNK
  10. ACETYLSALICYLIC ACID [Concomitant]
     Active Substance: ASPIRIN
     Dosage: UNK

REACTIONS (4)
  - Grunting [Unknown]
  - Encephalitis [Unknown]
  - Gait disturbance [Unknown]
  - Generalised tonic-clonic seizure [Not Recovered/Not Resolved]

NARRATIVE: CASE EVENT DATE: 20190116
